FAERS Safety Report 23184307 (Version 1)
Quarter: 2023Q4

REPORT INFORMATION
  Report Type: Spontaneous
  Country: IT (occurrence: IT)
  Receive Date: 20231115
  Receipt Date: 20231115
  Transmission Date: 20240109
  Serious: Yes (Hospitalization, Other)
  Sender: FDA-Public Use
  Company Number: None

PATIENT
  Age: 65 Year
  Sex: Female
  Weight: 72 kg

DRUGS (16)
  1. ROCURONIUM BROMIDE [Suspect]
     Active Substance: ROCURONIUM BROMIDE
     Indication: General anaesthesia
     Dosage: 50 MILLIGRAM
     Route: 042
     Dates: start: 20231023, end: 20231023
  2. BRIDION [Suspect]
     Active Substance: SUGAMMADEX
     Indication: Anaesthesia
     Dosage: 200 MILLIGRAM
     Route: 042
     Dates: start: 20231023, end: 20231023
  3. CEFAZOLIN [Suspect]
     Active Substance: CEFAZOLIN
     Indication: Antibiotic prophylaxis
     Dosage: 2 GRAM
     Route: 042
     Dates: start: 20231023, end: 20231023
  4. SIMVASTATIN [Concomitant]
     Active Substance: SIMVASTATIN
  5. MORPHINE [Concomitant]
     Active Substance: MORPHINE
     Route: 030
  6. ACETAMINOPHEN [Concomitant]
     Active Substance: ACETAMINOPHEN
  7. FENTANYL CITRATE [Concomitant]
     Active Substance: FENTANYL CITRATE
     Dates: start: 20231023, end: 20231023
  8. OMEPRAZOLE [Concomitant]
     Active Substance: OMEPRAZOLE
  9. LEVOTHYROXINE SODIUM [Concomitant]
     Active Substance: LEVOTHYROXINE SODIUM
     Indication: Hyperthyroidism
  10. PROPOFOL [Concomitant]
     Active Substance: PROPOFOL
     Dates: start: 20231023, end: 20231023
  11. ASPIRIN DL-LYSINE [Concomitant]
     Active Substance: ASPIRIN DL-LYSINE
  12. ONDANSETRON [Concomitant]
     Active Substance: ONDANSETRON
     Dosage: 4 MILLIGRAM
  13. ZOFENOPRIL [Concomitant]
     Active Substance: ZOFENOPRIL
  14. KETOROLAC [Concomitant]
     Active Substance: KETOROLAC TROMETHAMINE
  15. TOPIRAMATE [Concomitant]
     Active Substance: TOPIRAMATE
  16. DICOLEV [Concomitant]

REACTIONS (2)
  - Airway complication of anaesthesia [Not Recovered/Not Resolved]
  - Laryngeal oedema [Not Recovered/Not Resolved]

NARRATIVE: CASE EVENT DATE: 20231023
